FAERS Safety Report 5892537-3 (Version None)
Quarter: 2008Q3

REPORT INFORMATION
  Report Type: 
  Country: None (occurrence: None)
  Receive Date: 20080923
  Receipt Date: 20080912
  Transmission Date: 20090109
  Serious: Yes (Other)
  Sender: FDA-Public Use
  Company Number: FR-BAYER-200825178GPV

PATIENT
  Age: 62 Year
  Sex: Male
  Weight: 55 kg

DRUGS (14)
  1. MABCAMPATH [Suspect]
     Indication: MYCOSIS FUNGOIDES
     Dosage: TOTAL DAILY DOSE: 30 MG
     Route: 058
     Dates: start: 20080604, end: 20080906
  2. FENOFIBRATE [Concomitant]
  3. LEVOTHYROX [Concomitant]
  4. ZOPICLONE [Concomitant]
  5. INIPOMP 40 [Concomitant]
     Route: 065
  6. DEPAMIDE [Concomitant]
     Route: 065
  7. ANAFRANIL [Concomitant]
     Route: 065
  8. DEROXAT [Concomitant]
  9. XYZAL [Concomitant]
  10. ATARAX [Concomitant]
  11. COVERSYL [Concomitant]
  12. PLAVIX [Concomitant]
  13. DIPROSONE [Concomitant]
  14. COLD CREAM [Concomitant]

REACTIONS (2)
  - CONGESTIVE CARDIOMYOPATHY [None]
  - DYSPNOEA [None]
